FAERS Safety Report 9266590 (Version 10)
Quarter: 2015Q2

REPORT INFORMATION
  Report Type: Report from Study
  Country: CA (occurrence: CA)
  Receive Date: 20130502
  Receipt Date: 20150622
  Transmission Date: 20150821
  Serious: Yes (Death, Other)
  Sender: FDA-Public Use
  Company Number: PHHY2013CA042637

PATIENT
  Age: 89 Year
  Sex: Female

DRUGS (4)
  1. ZOMETA [Suspect]
     Active Substance: ZOLEDRONIC ACID
     Dosage: 4 MG, EVERY 12 WEEKS
     Route: 042
     Dates: start: 201207
  2. ZOMETA [Suspect]
     Active Substance: ZOLEDRONIC ACID
     Dosage: 4 MG, EVERY 4 WEEKS
     Route: 042
     Dates: end: 20150522
  3. ZOMETA [Suspect]
     Active Substance: ZOLEDRONIC ACID
     Indication: METASTASES TO BONE
     Dosage: 3.3 MG, EVERY 12 WEEKS
     Route: 042
     Dates: start: 20120701
  4. PAMIDRONATE [Suspect]
     Active Substance: PAMIDRONATE DISODIUM
     Indication: METASTASES TO BONE
     Dosage: ONCE/SINGLE
     Route: 042
     Dates: start: 20120714, end: 20120714

REACTIONS (15)
  - Transient ischaemic attack [Recovering/Resolving]
  - Dehydration [Unknown]
  - Pneumonia [Fatal]
  - Weight bearing difficulty [Unknown]
  - Hypokinesia [Unknown]
  - Depressed level of consciousness [Unknown]
  - Dementia [Not Recovered/Not Resolved]
  - Hypophagia [Unknown]
  - Confusional state [Not Recovered/Not Resolved]
  - Poor venous access [Not Recovered/Not Resolved]
  - Breath sounds abnormal [Unknown]
  - Cardiac failure [Unknown]
  - Vein disorder [Unknown]
  - Tumour marker increased [Unknown]
  - Lethargy [Unknown]

NARRATIVE: CASE EVENT DATE: 201212
